FAERS Safety Report 4763272-X (Version None)
Quarter: 2005Q3

REPORT INFORMATION
  Report Type: 
  Country: None (occurrence: None)
  Receive Date: 20050908
  Receipt Date: 20050831
  Transmission Date: 20060218
  Serious: Yes (Other)
  Sender: FDA-Public Use
  Company Number: US-JNJFOC-20030901015

PATIENT
  Sex: Female
  Weight: 92.99 kg

DRUGS (7)
  1. REMICADE [Suspect]
     Indication: RHEUMATOID ARTHRITIS
     Route: 042
  2. PREDNISONE [Concomitant]
     Dates: start: 19840101
  3. ATENOLOL [Concomitant]
  4. METHOTREXATE [Concomitant]
     Dates: start: 19900101
  5. ZYRTEC [Concomitant]
  6. AMBIEN [Concomitant]
     Dosage: AS NEEDED
  7. XANAX [Concomitant]

REACTIONS (15)
  - ACNE [None]
  - ADVERSE DRUG REACTION [None]
  - ANGIOPLASTY [None]
  - ARTERIAL OCCLUSIVE DISEASE [None]
  - COSTOCHONDRITIS [None]
  - DIABETES MELLITUS [None]
  - EYE DISORDER [None]
  - FATIGUE [None]
  - INFECTION [None]
  - NASAL ULCER [None]
  - NEUROPATHY [None]
  - RESPIRATORY DISORDER [None]
  - STENT PLACEMENT [None]
  - VISUAL DISTURBANCE [None]
  - WEIGHT INCREASED [None]
